FAERS Safety Report 20002338 (Version 1)
Quarter: 2021Q4

REPORT INFORMATION
  Report Type: Report from Study
  Country: None (occurrence: CH)
  Receive Date: 20211027
  Receipt Date: 20211027
  Transmission Date: 20220303
  Serious: Yes (Death)
  Sender: FDA-Public Use
  Company Number: CH-ABBVIE-21K-151-4136969-00

PATIENT
  Age: 77 Year
  Sex: Female
  Weight: 57 kg

DRUGS (5)
  1. CARBIDOPA\LEVODOPA [Suspect]
     Active Substance: CARBIDOPA\LEVODOPA
     Indication: Parkinson^s disease
     Dosage: MD: 6.0 ML, CRD: 3.6 ML/H, CRN: 0 ML/H, ED: 1.0 ML?16H THERAPY
     Route: 050
     Dates: start: 20210125, end: 20210203
  2. CARBIDOPA\LEVODOPA [Suspect]
     Active Substance: CARBIDOPA\LEVODOPA
     Dosage: MD: 9.0 ML, CRD: 4.3 ML/H, CRN: 0 ML/H, ED: 1.5 ML?16H THERAPY
     Route: 050
     Dates: start: 20210203, end: 20210208
  3. CARBIDOPA\LEVODOPA [Suspect]
     Active Substance: CARBIDOPA\LEVODOPA
     Dosage: MD: 9.0 ML, CRD: 4.4 ML/H, CRN: 0 ML/H, ED: 1.5 ML?16H THERAPY
     Route: 050
     Dates: start: 20210208, end: 20210217
  4. CARBIDOPA\LEVODOPA [Suspect]
     Active Substance: CARBIDOPA\LEVODOPA
     Dosage: MD: 9.0 ML, CRD: 4.0 ML/H, CRN: 0 ML/H, ED: 1.5 ML?16H THERAPY
     Route: 050
     Dates: start: 20210217, end: 20210511
  5. CARBIDOPA\LEVODOPA [Suspect]
     Active Substance: CARBIDOPA\LEVODOPA
     Dosage: MD: 9.0 ML, CRD: 3.9 ML/H, CRN: 0 ML/H, ED: 1.5 ML /1 CASETTE A DAY?16H THERAPY
     Route: 050
     Dates: start: 20210511

REACTIONS (1)
  - Death [Fatal]

NARRATIVE: CASE EVENT DATE: 20211022
